FAERS Safety Report 25288584 (Version 2)
Quarter: 2025Q2

REPORT INFORMATION
  Report Type: Spontaneous
  Country: GB (occurrence: GB)
  Receive Date: 20250509
  Receipt Date: 20250602
  Transmission Date: 20250716
  Serious: Yes (Hospitalization, Other)
  Sender: PFIZER
  Company Number: None

PATIENT
  Age: 55 Year
  Sex: Female

DRUGS (13)
  1. PEMETREXED [Suspect]
     Active Substance: PEMETREXED
  2. CARBOPLATIN [Suspect]
     Active Substance: CARBOPLATIN
     Route: 042
  3. PEMBROLIZUMAB [Suspect]
     Active Substance: PEMBROLIZUMAB
     Route: 042
  4. DEXAMETHASONE [Suspect]
     Active Substance: DEXAMETHASONE
     Route: 042
  5. HYDROXOCOBALAMIN [Suspect]
     Active Substance: HYDROXOCOBALAMIN
     Route: 030
  6. ONDANSETRON [Suspect]
     Active Substance: ONDANSETRON
     Route: 048
  7. MORPHINE SULFATE [Concomitant]
     Active Substance: MORPHINE SULFATE
     Indication: Pain
  8. CITALOPRAM [Concomitant]
     Active Substance: CITALOPRAM
     Dosage: 10 MG, 1X/DAY (10 MG TABLETS ONE TO BE TAKEN EACH DAY)
  9. CITALOPRAM [Concomitant]
     Active Substance: CITALOPRAM
     Dosage: 20 MG, 1X/DAY (20 MG TABLETS ONE TO BE TAKEN EACH DAY)
  10. OMEPRAZOLE [Concomitant]
     Active Substance: OMEPRAZOLE
     Dosage: 20 MG, 1X/DAY (ONE TO BE TAKEN EACH DAY)
  11. DEXTROSE [Concomitant]
     Active Substance: DEXTROSE MONOHYDRATE
  12. SENNOSIDES A AND B [Concomitant]
     Active Substance: SENNOSIDES A AND B
  13. MORPHINE SULFATE [Concomitant]
     Active Substance: MORPHINE SULFATE
     Dosage: 20 MG, 2X/DAY (TWO TO BE TAKEN EVERY 12 HOURS)

REACTIONS (3)
  - Haematemesis [Unknown]
  - Vomiting [Unknown]
  - Diarrhoea [Unknown]
